FAERS Safety Report 7312037-3 (Version None)
Quarter: 2011Q1

REPORT INFORMATION
  Report Type: 
  Country: None (occurrence: None)
  Receive Date: 20110224
  Receipt Date: 20100125
  Transmission Date: 20110831
  Serious: No
  Sender: FDA-Public Use
  Company Number: US-BRISTOL-MYERS SQUIBB COMPANY-14950687

PATIENT
  Sex: Male

DRUGS (1)
  1. TAXOL [Suspect]

REACTIONS (1)
  - NEUROPATHY PERIPHERAL [None]
